FAERS Safety Report 20911550 (Version 1)
Quarter: 2022Q2

REPORT INFORMATION
  Report Type: Spontaneous
  Country: ES (occurrence: ES)
  Receive Date: 20220603
  Receipt Date: 20220603
  Transmission Date: 20220720
  Serious: Yes (Other)
  Sender: FDA-Public Use
  Company Number: None

PATIENT

DRUGS (2)
  1. BUPROPION HYDROCHLORIDE [Suspect]
     Active Substance: BUPROPION HYDROCHLORIDE
     Indication: Major depression
     Dosage: 150 MG, QD (1 TABLET A DAY)
     Route: 048
     Dates: start: 20220518
  2. LORAZEPAM [Concomitant]
     Active Substance: LORAZEPAM
     Indication: Anxiety
     Dosage: 3 DF, QD (3 A DAY)
     Route: 065
     Dates: start: 20200202

REACTIONS (1)
  - Spider vein [Recovering/Resolving]

NARRATIVE: CASE EVENT DATE: 20220523
